FAERS Safety Report 11830810 (Version 2)
Quarter: 2015Q4

REPORT INFORMATION
  Report Type: Spontaneous
  Country: AU (occurrence: AU)
  Receive Date: 20151214
  Receipt Date: 20151217
  Transmission Date: 20160305
  Serious: Yes (Death, Hospitalization)
  Sender: FDA-Public Use
  Company Number: AU-ACCORD-036262

PATIENT
  Age: 62 Year
  Sex: Female

DRUGS (2)
  1. TRASTUZUMAB [Suspect]
     Active Substance: TRASTUZUMAB
     Indication: INVASIVE DUCTAL BREAST CARCINOMA
     Dosage: THRICE WEEKLY WAS PLANNED
  2. PACLITAXEL/PACLITAXEL LIPOSOME [Suspect]
     Active Substance: PACLITAXEL
     Indication: INVASIVE DUCTAL BREAST CARCINOMA
     Dosage: WAS PLANNED WEEKLY

REACTIONS (5)
  - Acute respiratory distress syndrome [Unknown]
  - Cardiac failure [Unknown]
  - Acute respiratory failure [Unknown]
  - Hepatic necrosis [Fatal]
  - Pulmonary oedema [Unknown]
